FAERS Safety Report 5237717-5 (Version None)
Quarter: 2007Q1

REPORT INFORMATION
  Report Type: 
  Country: None (occurrence: None)
  Receive Date: 20070214
  Receipt Date: 20040730
  Transmission Date: 20070707
  Serious: Yes (Hospitalization)
  Sender: FDA-Public Use
  Company Number: 2004AP03946

PATIENT
  Age: 16941 Day
  Sex: Male

DRUGS (9)
  1. ATACAND [Suspect]
     Indication: HYPERTENSION
     Route: 048
     Dates: start: 20030307
  2. ASPIRIN [Concomitant]
     Indication: THROMBOSIS PROPHYLAXIS
  3. GLIMEPIRIDE [Concomitant]
     Indication: DIABETES MELLITUS
  4. ATENOLOL [Concomitant]
     Indication: HYPERTENSION
  5. HYDROCHLOROTHIAZIDE [Concomitant]
     Indication: HYPERTENSION
  6. ACARBOSE [Concomitant]
     Indication: DIABETES MELLITUS
  7. ESOMEPRAZOLE MAGNESIUM [Concomitant]
     Indication: DUODENAL ULCER
  8. FAMOTIDINE [Concomitant]
     Indication: GASTRITIS
  9. REBAMIPIDE [Concomitant]
     Indication: GASTRITIS

REACTIONS (1)
  - MELAENA [None]
